FAERS Safety Report 9753417 (Version 1)
Quarter: 2013Q4

REPORT INFORMATION
  Report Type: Spontaneous
  Country: US (occurrence: US)
  Receive Date: 20131213
  Receipt Date: 20131213
  Transmission Date: 20140711
  Serious: No
  Sender: FDA-Public Use
  Company Number: US-TEVA-403563USA

PATIENT
  Age: 41 Year
  Sex: Female

DRUGS (1)
  1. PARAGARD 380A [Suspect]
     Indication: CONTRACEPTION
     Route: 015
     Dates: start: 20111011, end: 20130318

REACTIONS (4)
  - Device expulsion [Recovered/Resolved]
  - Menstruation delayed [Unknown]
  - Menstruation irregular [Unknown]
  - Pelvic discomfort [Unknown]
